FAERS Safety Report 7517893-1 (Version None)
Quarter: 2011Q2

REPORT INFORMATION
  Report Type: 
  Country: None (occurrence: None)
  Receive Date: 20110602
  Receipt Date: 20110505
  Transmission Date: 20111010
  Serious: Yes (Hospitalization, Other)
  Sender: FDA-Public Use
  Company Number: US-BAYER-201015999NA

PATIENT
  Age: 38 Year
  Sex: Female
  Weight: 65 kg

DRUGS (21)
  1. YASMIN [Suspect]
     Indication: ENDOMETRIOSIS
  2. VALTREX [Concomitant]
     Indication: HERPES ZOSTER
     Dates: start: 20050101
  3. FIORICET [Concomitant]
     Indication: MIGRAINE
     Dates: start: 20030901
  4. COMPAZINE [Concomitant]
     Indication: NAUSEA
  5. VITAMIN D [Concomitant]
     Indication: SUPPLEMENTATION THERAPY
     Dates: start: 20060101
  6. YAZ [Suspect]
     Indication: ENDOMETRIOSIS
     Route: 048
  7. NEXIUM [Concomitant]
     Indication: PROPHYLAXIS AGAINST GASTROINTESTINAL ULCER
     Dates: start: 20030101
  8. ZANAFLEX [Concomitant]
     Indication: MUSCLE SPASMS
     Dates: start: 20060101
  9. COUMADIN [Concomitant]
     Indication: THROMBOSIS
     Dates: start: 20031101
  10. LOVENOX [Concomitant]
     Indication: DRUG RESISTANCE
     Dates: start: 20080101
  11. ACTONEL [Concomitant]
     Indication: BONE DISORDER
     Dates: start: 20030101
  12. METANEX [Concomitant]
     Dates: start: 20080101
  13. TOPAMAX [Concomitant]
     Indication: TREMOR
     Dates: start: 20100101
  14. YASMIN [Suspect]
     Indication: PREMENSTRUAL SYNDROME
     Dosage: 1 DF (DAILY DOSE), ,
     Dates: start: 20000101, end: 20100615
  15. CYMBALTA [Concomitant]
     Indication: PAIN
     Dates: start: 20050101
  16. OSCAL [Concomitant]
     Indication: BONE DISORDER
     Dates: start: 20030101
  17. PREDNISONE [Concomitant]
     Indication: MUSCLE DISORDER
     Dosage: 40 MG, QD
     Dates: start: 20030101
  18. COMPAZINE [Concomitant]
     Indication: VOMITING
     Dates: start: 20030101
  19. ELAVIL [Concomitant]
     Dosage: 20 MG, BID
  20. METANEX [Concomitant]
     Indication: PAIN
     Dates: start: 20080101
  21. PEPCID [Concomitant]
     Dosage: 20 MG, BID

REACTIONS (2)
  - DEEP VEIN THROMBOSIS [None]
  - PULMONARY EMBOLISM [None]
